FAERS Safety Report 5034919-8 (Version None)
Quarter: 2006Q2

REPORT INFORMATION
  Report Type: 
  Country: None (occurrence: None)
  Receive Date: 20060519
  Receipt Date: 20050714
  Transmission Date: 20061013
  Serious: Yes (Hospitalization)
  Sender: FDA-Public Use
  Company Number: 200514567US

PATIENT
  Age: 20 Month
  Sex: Female
  Weight: 10 kg

DRUGS (6)
  1. DESMOPRESSIN ACETATE [Suspect]
     Indication: DIABETES MELLITUS
     Dosage: 4 UG/ML QD IV
     Route: 042
     Dates: start: 20030912
  2. DESMOPRESSIN ACETATE [Suspect]
     Indication: DIABETES MELLITUS
     Dosage: 4 UG/ML QD IV
     Route: 042
  3. SYNTHROID [Concomitant]
  4. HYDROCORTISONE [Concomitant]
  5. MACROGOL (MIRALAX) [Concomitant]
  6. HYOSCYAMINE SULFATE (LEVSIN) [Concomitant]

REACTIONS (2)
  - HYPONATRAEMIA [None]
  - PALLOR [None]
